FAERS Safety Report 24291377 (Version 1)
Quarter: 2024Q3

REPORT INFORMATION
  Report Type: Spontaneous
  Country: US (occurrence: None)
  Receive Date: 20240906
  Receipt Date: 20240906
  Transmission Date: 20241017
  Serious: No
  Sender: DOMPE FARMACEUTICI
  Company Number: US-FARMAPROD-202308-2462

PATIENT
  Age: 76 Year
  Sex: Female

DRUGS (12)
  1. OXERVATE [Suspect]
     Active Substance: CENEGERMIN-BKBJ
     Indication: Neurotrophic keratopathy
     Route: 047
     Dates: start: 20230807
  2. CALCIUM CITRATE [Concomitant]
     Active Substance: CALCIUM CITRATE
  3. BILBERRY [Concomitant]
     Active Substance: BILBERRY
  4. VITAMIN A and BETA CAROTENE [Concomitant]
  5. MENAQUINONE 6 [Concomitant]
     Active Substance: MENAQUINONE 6
  6. UBIQUINOL [Concomitant]
     Active Substance: UBIQUINOL
  7. GLUCOSAMINE-MSM [Concomitant]
     Dosage: 500-500 MG
  8. HERBALS\TURMERIC [Concomitant]
     Active Substance: HERBALS\TURMERIC
  9. OMEGA 3 [Concomitant]
     Active Substance: CAPSAICIN
     Dosage: 684-1200 MG
  10. VITAMIN C [Concomitant]
     Active Substance: ASCORBIC ACID
  11. ARTIFICIAL TEARS [Concomitant]
     Dosage: 0.1%-0.3%
  12. LISINOPRIL [Concomitant]
     Active Substance: LISINOPRIL

REACTIONS (2)
  - Eye pain [Unknown]
  - Product use issue [Unknown]

NARRATIVE: CASE EVENT DATE: 20230801
